FAERS Safety Report 9542921 (Version 1)
Quarter: 2013Q2

REPORT INFORMATION
  Report Type: Spontaneous
  Country: US (occurrence: None)
  Receive Date: 20130524
  Receipt Date: 20130524
  Transmission Date: 20140414
  Serious: No
  Sender: FDA-Public Use
  Company Number: PHEH2012US025692

PATIENT
  Age: 52 Year
  Sex: Male
  Weight: 61.2 kg

DRUGS (9)
  1. GILENYA (FINGOLIMOD) CAPSULE, 0.5MG [Suspect]
     Route: 048
  2. RAZADYNE (GALANTAMINE HYDROBROMIDE) [Concomitant]
  3. MIRALAX [Concomitant]
  4. BACLOFEN (BACLOFEN) [Concomitant]
  5. LORAZEPAM (LORAZEPAM) [Concomitant]
  6. RILUTEK (RILUZOLE) [Concomitant]
  7. DILAUDID (HYDROMORPHONE HYDROCHLORIDE) [Concomitant]
  8. POTASSIUM GLUCONATE (POTASSIUM GLUCONATE) [Concomitant]
  9. RESVERATROL (RESVERATROL) [Concomitant]

REACTIONS (2)
  - Abdominal discomfort [None]
  - Pain [None]
